FAERS Safety Report 6341935-2 (Version None)
Quarter: 2009Q3

REPORT INFORMATION
  Report Type: 
  Country: None (occurrence: None)
  Receive Date: 20090904
  Receipt Date: 20090901
  Transmission Date: 20100115
  Serious: Yes (Death, Other)
  Sender: FDA-Public Use
  Company Number: PHHY2009JP37213

PATIENT
  Age: 50 Year
  Sex: Male

DRUGS (11)
  1. CYCLOSPORINE [Suspect]
     Indication: CORD BLOOD TRANSPLANT THERAPY
  2. CYCLOSPORINE [Suspect]
     Indication: PROPHYLAXIS AGAINST GRAFT VERSUS HOST DISEASE
  3. METHOTREXATE [Suspect]
     Indication: CORD BLOOD TRANSPLANT THERAPY
  4. METHOTREXATE [Suspect]
     Indication: PROPHYLAXIS AGAINST GRAFT VERSUS HOST DISEASE
  5. IRRADIATION [Concomitant]
     Indication: CORD BLOOD TRANSPLANT THERAPY
     Dosage: 12 GY, UNK
  6. FLUDARABINE PHOSPHATE [Concomitant]
     Indication: CORD BLOOD TRANSPLANT THERAPY
     Dosage: 90 MG/M2, UNK
  7. CYTARABINE [Concomitant]
     Indication: CORD BLOOD TRANSPLANT THERAPY
     Dosage: 24 G/M^2
  8. NEUPOGEN [Concomitant]
     Indication: CORD BLOOD TRANSPLANT THERAPY
     Dosage: 5 MICROGRAM/KG/DAY
  9. HEPARIN [Concomitant]
     Indication: PROPHYLAXIS
     Dosage: 5000 U/DAY
  10. PLATELETS [Concomitant]
  11. IMMUNOGLOBULINS [Concomitant]

REACTIONS (15)
  - ACUTE GRAFT VERSUS HOST DISEASE IN SKIN [None]
  - ADENOVIRAL HAEMORRHAGIC CYSTITIS [None]
  - CYTOMEGALOVIRUS ANTIGEN POSITIVE [None]
  - DYSPNOEA EXERTIONAL [None]
  - DYSURIA [None]
  - FEBRILE NEUTROPENIA [None]
  - HAEMATURIA [None]
  - HUMAN HERPES VIRUS 6 SEROLOGY POSITIVE [None]
  - HYPOXIA [None]
  - INTERSTITIAL LUNG DISEASE [None]
  - MULTI-ORGAN FAILURE [None]
  - POLLAKIURIA [None]
  - PULMONARY ALVEOLAR HAEMORRHAGE [None]
  - RALES [None]
  - RASH [None]
